FAERS Safety Report 14185222 (Version 1)
Quarter: 2017Q4

REPORT INFORMATION
  Report Type: Spontaneous
  Country: US (occurrence: US)
  Receive Date: 20171114
  Receipt Date: 20171114
  Transmission Date: 20180321
  Serious: Yes (Other)
  Sender: FDA-Public Use
  Company Number: US-ASTRAZENECA-2017SF13973

PATIENT
  Age: 71 Year
  Sex: Female
  Weight: 64.8 kg

DRUGS (11)
  1. CITRUCEL [Concomitant]
     Active Substance: METHYLCELLULOSE (4000 MPA.S)
  2. ANASTROZOLE. [Suspect]
     Active Substance: ANASTROZOLE
     Indication: INVASIVE LOBULAR BREAST CARCINOMA
     Route: 048
     Dates: start: 20050501, end: 20161227
  3. ALBUTEROL SULFATE. [Concomitant]
     Active Substance: ALBUTEROL SULFATE
     Dosage: TAKE 2 PUFFS, EVERY 4 HOURS
  4. DULERA [Concomitant]
     Active Substance: FORMOTEROL FUMARATE DIHYDRATE\MOMETASONE FUROATE
     Dosage: 2 INHALATIONS BY MOUTH, 2 TIMES A DAY.
  5. SINGULAIR [Concomitant]
     Active Substance: MONTELUKAST SODIUM
     Route: 048
  6. VIBRAMYCIN [Concomitant]
     Active Substance: DOXYCYCLINE
     Route: 048
  7. FULVESTRANT. [Suspect]
     Active Substance: FULVESTRANT
     Indication: INVASIVE LOBULAR BREAST CARCINOMA
     Dosage: ONCE A MONTH
     Route: 030
     Dates: start: 20161223, end: 20171006
  8. IBRANCE [Suspect]
     Active Substance: PALBOCICLIB
     Indication: INVASIVE LOBULAR BREAST CARCINOMA
     Route: 048
  9. VITAMIN B12 [Concomitant]
     Active Substance: CYANOCOBALAMIN
     Route: 048
  10. FOSAMAX [Concomitant]
     Active Substance: ALENDRONATE SODIUM
     Route: 048
  11. ADVIL [Concomitant]
     Active Substance: IBUPROFEN
     Dosage: 400MG, EVERY 4 HOURS

REACTIONS (5)
  - Metastases to chest wall [Unknown]
  - Malignant neoplasm progression [Unknown]
  - Metastases to bone [Unknown]
  - Rash [Unknown]
  - Limb mass [Unknown]
